FAERS Safety Report 13642561 (Version 1)
Quarter: 2017Q2

REPORT INFORMATION
  Report Type: Spontaneous
  Country: US (occurrence: US)
  Receive Date: 20170612
  Receipt Date: 20170612
  Transmission Date: 20170830
  Serious: Yes (Other)
  Sender: FDA-Public Use
  Company Number: US-AUROBINDO-AUR-APL-2017-35237

PATIENT
  Age: 51 Year
  Sex: Female

DRUGS (2)
  1. PREDNISONE. [Suspect]
     Active Substance: PREDNISONE
     Dosage: 100 MG, DAILY
  2. PREDNISONE. [Suspect]
     Active Substance: PREDNISONE
     Indication: ASTHMA
     Dosage: 10 MG, DAILY

REACTIONS (5)
  - Bronchopulmonary aspergillosis [Recovering/Resolving]
  - Tachycardia [Recovering/Resolving]
  - Wheezing [Recovering/Resolving]
  - Respiratory distress [Recovering/Resolving]
  - Respiratory alkalosis [Recovering/Resolving]
